FAERS Safety Report 10231066 (Version 3)
Quarter: 2014Q3

REPORT INFORMATION
  Report Type: Spontaneous
  Country: US (occurrence: US)
  Receive Date: 20140611
  Receipt Date: 20140718
  Transmission Date: 20150326
  Serious: Yes (Death, Other)
  Sender: FDA-Public Use
  Company Number: US-009507513-1406USA004421

PATIENT
  Age: 61 Year
  Sex: Male

DRUGS (1)
  1. VICTRELIS [Suspect]
     Active Substance: BOCEPREVIR
     Indication: HEPATITIS C
     Dosage: ^FOUR PO^, THREE TIMES A DAY
     Route: 048
     Dates: end: 201204

REACTIONS (4)
  - Aortic dissection [Unknown]
  - Aortic aneurysm [Unknown]
  - Coronary artery disease [Unknown]
  - Death [Fatal]

NARRATIVE: CASE EVENT DATE: 20140503
